FAERS Safety Report 9378677 (Version 2)
Quarter: 2013Q3

REPORT INFORMATION
  Report Type: Spontaneous
  Country: US (occurrence: US)
  Receive Date: 20130702
  Receipt Date: 20130723
  Transmission Date: 20140515
  Serious: No
  Sender: FDA-Public Use
  Company Number: US-009507513-1306USA013951

PATIENT
  Age: 74 Year
  Sex: Male

DRUGS (2)
  1. AZASITE [Suspect]
     Indication: VISION BLURRED
     Dosage: 4 GTT, QAM
     Route: 047
     Dates: start: 20130622
  2. AZASITE [Suspect]
     Indication: DRY EYE
     Dosage: 4 GTT, QPM
     Route: 047
     Dates: start: 20130622

REACTIONS (4)
  - Vision blurred [Not Recovered/Not Resolved]
  - Drug dose omission [Unknown]
  - Drug administration error [Unknown]
  - Product packaging quantity issue [Unknown]
